FAERS Safety Report 7742518-X (Version None)
Quarter: 2011Q3

REPORT INFORMATION
  Report Type: 
  Country: None (occurrence: None)
  Receive Date: 20110912
  Receipt Date: 20110831
  Transmission Date: 20111222
  Serious: Yes (Hospitalization)
  Sender: FDA-Public Use
  Company Number: US-ACTELION-A-NJ2011-50789

PATIENT

DRUGS (2)
  1. TRACLEER [Suspect]
     Indication: PULMONARY ARTERIAL HYPERTENSION
     Dosage: UNK
     Route: 048
     Dates: start: 20090629
  2. COUMADIN [Concomitant]

REACTIONS (7)
  - HYSTERECTOMY [None]
  - DYSMENORRHOEA [None]
  - FATIGUE [None]
  - DEPRESSED MOOD [None]
  - UTERINE NEOPLASM [None]
  - UTERINE HAEMORRHAGE [None]
  - ANAEMIA [None]
